FAERS Safety Report 18406385 (Version 4)
Quarter: 2020Q4

REPORT INFORMATION
  Report Type: Report from Study
  Country: None (occurrence: FR)
  Receive Date: 20201020
  Receipt Date: 20201211
  Transmission Date: 20210114
  Serious: Yes (Death, Other)
  Sender: FDA-Public Use
  Company Number: FR-BIOVITRUM-2020FR5576

PATIENT
  Age: 79 Year
  Sex: Male
  Weight: 117 kg

DRUGS (2)
  1. KINERET [Suspect]
     Active Substance: ANAKINRA
     Dates: end: 20200923
  2. KINERET [Suspect]
     Active Substance: ANAKINRA
     Indication: COVID-19
     Dates: start: 20200914

REACTIONS (1)
  - Renal impairment [Not Recovered/Not Resolved]

NARRATIVE: CASE EVENT DATE: 20200923
